FAERS Safety Report 13361114 (Version 2)
Quarter: 2017Q2

REPORT INFORMATION
  Report Type: Spontaneous
  Country: CN (occurrence: CN)
  Receive Date: 20170322
  Receipt Date: 20170420
  Transmission Date: 20170830
  Serious: Yes (Other)
  Sender: FDA-Public Use
  Company Number: CN-ABBVIE-17P-035-1915353-00

PATIENT
  Age: 27 Year
  Sex: Male

DRUGS (4)
  1. DEPAKINE CHRONO [Suspect]
     Active Substance: VALPROATE SODIUM
     Dosage: TABLET, EXTENDED RELEASE
     Route: 048
     Dates: end: 2012
  2. DEPAKINE CHRONO [Suspect]
     Active Substance: VALPROATE SODIUM
     Dosage: TABLET, EXTENDED RELEASE
     Route: 048
     Dates: start: 2012, end: 2016
  3. DEPAKINE CHRONO [Suspect]
     Active Substance: VALPROATE SODIUM
     Indication: MANIA
     Dosage: TABLET, EXTENDED RELEASE
     Route: 048
     Dates: start: 2010
  4. DEPAKINE CHRONO [Suspect]
     Active Substance: VALPROATE SODIUM
     Dosage: TABLET, EXTENDED RELEASE
     Route: 048
     Dates: start: 2016

REACTIONS (7)
  - Drug use disorder [Unknown]
  - Hypoacusis [Unknown]
  - Alopecia [Unknown]
  - Inappropriate schedule of drug administration [Unknown]
  - Overdose [Unknown]
  - Obesity [Unknown]
  - Palpitations [Unknown]

NARRATIVE: CASE EVENT DATE: 2016
